FAERS Safety Report 8588344-3 (Version None)
Quarter: 2012Q3

REPORT INFORMATION
  Report Type: 
  Country: None (occurrence: None)
  Receive Date: 20120813
  Receipt Date: 20120801
  Transmission Date: 20120928
  Serious: No
  Sender: FDA-Public Use
  Company Number: DE-ELI_LILLY_AND_COMPANY-DE201207007145

PATIENT
  Age: 53 Year
  Sex: Male

DRUGS (1)
  1. ZYPREXA [Suspect]
     Indication: MENTAL DISORDER
     Dosage: UNK, UNKNOWN

REACTIONS (7)
  - DIABETES MELLITUS [None]
  - ERECTILE DYSFUNCTION [None]
  - BLOOD CHOLESTEROL INCREASED [None]
  - WEIGHT INCREASED [None]
  - MEAN CELL VOLUME INCREASED [None]
  - PLATELET COUNT DECREASED [None]
  - MEAN CELL HAEMOGLOBIN INCREASED [None]
